FAERS Safety Report 14374730 (Version 4)
Quarter: 2018Q2

REPORT INFORMATION
  Report Type: Report from Study
  Country: JP (occurrence: JP)
  Receive Date: 20180111
  Receipt Date: 20180514
  Transmission Date: 20180711
  Serious: Yes (Hospitalization)
  Sender: FDA-Public Use
  Company Number: JP-ACTELION-A-CH2017-149025

PATIENT
  Age: 18 Year
  Sex: Female

DRUGS (41)
  1. EPOPROSTENOL ACT [Suspect]
     Active Substance: EPOPROSTENOL
     Dosage: 52.64 NG/KG, PER MIN
     Route: 042
     Dates: start: 20150731
  2. EPOPROSTENOL ACT [Suspect]
     Active Substance: EPOPROSTENOL
     Dosage: 55.28 NG/KG, PER MIN
     Route: 042
     Dates: start: 20150824
  3. EPOPROSTENOL ACT [Suspect]
     Active Substance: EPOPROSTENOL
     Dosage: 60.16 NG/KG, PER MIN
     Route: 042
     Dates: start: 20150910
  4. EPOPROSTENOL ACT [Suspect]
     Active Substance: EPOPROSTENOL
     Dosage: 65.85 NG/KG, PER MIN
     Route: 042
     Dates: start: 20160120
  5. EPOPROSTENOL ACT [Suspect]
     Active Substance: EPOPROSTENOL
     Dosage: 75.2 NG/KG, PER MIN
     Route: 042
     Dates: start: 20160320
  6. EPOPROSTENOL ACT [Suspect]
     Active Substance: EPOPROSTENOL
     Dosage: 76.02 NG/KG, PER MIN
     Route: 042
     Dates: start: 20160413
  7. VOLIBRIS [Suspect]
     Active Substance: AMBRISENTAN
     Indication: PULMONARY ARTERIAL HYPERTENSION
     Dosage: 2.5 MG, QD
     Route: 048
     Dates: start: 20150401, end: 20150403
  8. REVATIO [Concomitant]
     Active Substance: SILDENAFIL CITRATE
     Indication: PRODUCT USED FOR UNKNOWN INDICATION
  9. LUPRAC [Concomitant]
     Active Substance: TORSEMIDE
     Indication: PRODUCT USED FOR UNKNOWN INDICATION
  10. EPOPROSTENOL ACT [Suspect]
     Active Substance: EPOPROSTENOL
     Indication: PULMONARY ARTERIAL HYPERTENSION
     Dosage: 0.2 NG/KG, PER MIN
     Route: 042
     Dates: start: 20150325
  11. EPOPROSTENOL ACT [Suspect]
     Active Substance: EPOPROSTENOL
     Dosage: 23.1 NG/KG, PER MIN
     Route: 042
     Dates: start: 20150425
  12. EPOPROSTENOL ACT [Suspect]
     Active Substance: EPOPROSTENOL
     Dosage: 61.79 NG/KG, PER MIN
     Route: 042
     Dates: start: 20151028
  13. EPOPROSTENOL ACT [Suspect]
     Active Substance: EPOPROSTENOL
     Dosage: 100.61 NG/KG, PER MIN
     Route: 042
     Dates: start: 20170705
  14. EPOPROSTENOL ACT [Suspect]
     Active Substance: EPOPROSTENOL
     Dosage: 103.66 NG/KG, PER MIN
     Route: 042
     Dates: start: 20170802
  15. EPOPROSTENOL ACT [Suspect]
     Active Substance: EPOPROSTENOL
     Dosage: 115 NG/KG, PER MIN
     Route: 042
     Dates: start: 20180328
  16. VOLIBRIS [Suspect]
     Active Substance: AMBRISENTAN
     Dosage: 5 MG, BID
     Route: 048
     Dates: start: 20150414, end: 20150511
  17. OPSUMIT [Concomitant]
     Active Substance: MACITENTAN
     Indication: PRODUCT USED FOR UNKNOWN INDICATION
     Dosage: UNK
     Route: 048
     Dates: start: 20150610
  18. EPOPROSTENOL ACT [Suspect]
     Active Substance: EPOPROSTENOL
     Dosage: 73.17 NG/KG, PER MIN
     Route: 042
     Dates: start: 20160310
  19. EPOPROSTENOL ACT [Suspect]
     Active Substance: EPOPROSTENOL
     Dosage: 99.59 NG/KG, PER MIN
     Route: 042
     Dates: start: 20160914
  20. EPOPROSTENOL ACT [Suspect]
     Active Substance: EPOPROSTENOL
     Dosage: 106.71 NG/KG, PER MIN
     Route: 042
     Dates: start: 20180124
  21. ADCIRCA [Suspect]
     Active Substance: TADALAFIL
     Indication: PULMONARY ARTERIAL HYPERTENSION
     Dosage: 40 MG, QD
     Route: 048
     Dates: start: 20150323
  22. EPOPROSTENOL ACT [Suspect]
     Active Substance: EPOPROSTENOL
     Dosage: 36.2 NG/KG, PER MIN
     Route: 042
     Dates: start: 20150525
  23. EPOPROSTENOL ACT [Suspect]
     Active Substance: EPOPROSTENOL
     Dosage: 69.17 NG/KG, PER MIN
     Route: 042
     Dates: start: 20160212
  24. DOBUTREX [Concomitant]
     Active Substance: DOBUTAMINE HYDROCHLORIDE
     Indication: PRODUCT USED FOR UNKNOWN INDICATION
     Dosage: UNK
     Dates: start: 20150331
  25. EPOPROSTENOL ACT [Suspect]
     Active Substance: EPOPROSTENOL
     Dosage: 82.93 NG/KG, PER MIN
     Route: 042
     Dates: start: 20160608
  26. TRACLEER [Suspect]
     Active Substance: BOSENTAN
     Indication: PULMONARY ARTERIAL HYPERTENSION
     Dosage: 125 MG, QD
     Route: 048
     Dates: start: 20150512, end: 20150518
  27. SPIRONOLACTONE. [Concomitant]
     Active Substance: SPIRONOLACTONE
     Indication: PRODUCT USED FOR UNKNOWN INDICATION
  28. EPOPROSTENOL ACT [Suspect]
     Active Substance: EPOPROSTENOL
     Dosage: 85.37 NG/KG, PER MIN
     Route: 042
     Dates: start: 20160706
  29. TRACLEER [Suspect]
     Active Substance: BOSENTAN
     Dosage: 250 MG, QD
     Route: 048
     Dates: start: 20150529, end: 20150604
  30. EPOPROSTENOL ACT [Suspect]
     Active Substance: EPOPROSTENOL
     Dosage: 42.7 NG/KG, PER MIN
     Route: 042
     Dates: start: 20150617
  31. FUROSEMIDE. [Concomitant]
     Active Substance: FUROSEMIDE
     Indication: PRODUCT USED FOR UNKNOWN INDICATION
  32. OXYGEN. [Concomitant]
     Active Substance: OXYGEN
     Indication: PRODUCT USED FOR UNKNOWN INDICATION
  33. K-SUPPLY [Concomitant]
     Active Substance: POTASSIUM CHLORIDE
  34. EPOPROSTENOL ACT [Suspect]
     Active Substance: EPOPROSTENOL
     Dosage: 64.02 NG/KG, PER MIN
     Route: 042
     Dates: start: 20151125
  35. EPOPROSTENOL ACT [Suspect]
     Active Substance: EPOPROSTENOL
     Dosage: 80.1 NG/KG, PER MIN
     Route: 042
     Dates: start: 20160524
  36. EPOPROSTENOL ACT [Suspect]
     Active Substance: EPOPROSTENOL
     Dosage: 90.24 NG/KG, PER MIN
     Route: 042
     Dates: start: 20160810
  37. DOBUTAMINE [Suspect]
     Active Substance: DOBUTAMINE\DOBUTAMINE HYDROCHLORIDE
     Indication: PULMONARY ARTERIAL HYPERTENSION
     Dosage: 3 ?G, QD
     Route: 042
     Dates: start: 20150323, end: 20150331
  38. VOLIBRIS [Suspect]
     Active Substance: AMBRISENTAN
     Dosage: 2.5 MG, QD
     Route: 048
     Dates: start: 20150404, end: 20150413
  39. TRACLEER [Suspect]
     Active Substance: BOSENTAN
     Dosage: 187.5 MG, QD
     Route: 048
     Dates: start: 20150519, end: 20150528
  40. TRACLEER [Suspect]
     Active Substance: BOSENTAN
     Dosage: 187.5 MG, QD
     Route: 048
     Dates: start: 20150605, end: 20150610
  41. SODIUM RABEPRAZOLE [Concomitant]
     Active Substance: RABEPRAZOLE SODIUM
     Indication: PRODUCT USED FOR UNKNOWN INDICATION

REACTIONS (31)
  - Pyrexia [Recovered/Resolved]
  - Anaemia [Recovered/Resolved]
  - Malaise [Recovering/Resolving]
  - Device occlusion [Recovered/Resolved]
  - Catheter site pain [Recovered/Resolved]
  - Salmonella bacteraemia [Recovered/Resolved]
  - Nausea [Recovering/Resolving]
  - Haemoglobin decreased [Recovering/Resolving]
  - Arthralgia [Recovering/Resolving]
  - Bone pain [Recovering/Resolving]
  - Catheter management [Unknown]
  - Catheter site erythema [Recovered/Resolved]
  - Aspartate aminotransferase increased [Recovering/Resolving]
  - Blood potassium decreased [Recovered/Resolved]
  - Enteritis infectious [Recovered/Resolved]
  - Device damage [Recovered/Resolved with Sequelae]
  - Alanine aminotransferase increased [Recovering/Resolving]
  - Bone swelling [Recovering/Resolving]
  - Viral pharyngitis [Recovered/Resolved]
  - Cough [Recovered/Resolved]
  - Catheter site infection [Recovered/Resolved]
  - Clostridium difficile colitis [Recovered/Resolved]
  - Abdominal pain [Recovering/Resolving]
  - Weight increased [Recovering/Resolving]
  - Vomiting [Recovered/Resolved]
  - Headache [Recovering/Resolving]
  - Tachycardia [Recovered/Resolved]
  - Platelet count decreased [Recovering/Resolving]
  - Pain in jaw [Recovered/Resolved]
  - Blood pressure decreased [Recovered/Resolved]
  - Diarrhoea [Recovering/Resolving]

NARRATIVE: CASE EVENT DATE: 20150325
